FAERS Safety Report 9752919 (Version 1)
Quarter: 2013Q4

REPORT INFORMATION
  Report Type: Spontaneous
  Country: US (occurrence: US)
  Receive Date: 20131213
  Receipt Date: 20131213
  Transmission Date: 20140711
  Serious: No
  Sender: FDA-Public Use
  Company Number: US-GLAXOSMITHKLINE-A1037349A

PATIENT
  Age: 56 Year
  Sex: Male
  Weight: 83 kg

DRUGS (1)
  1. ARZERRA [Suspect]
     Indication: OSTEOCHONDROSIS
     Dosage: 300MG SINGLE DOSE
     Route: 042
     Dates: start: 20130809

REACTIONS (4)
  - Infusion related reaction [Recovered/Resolved]
  - Bronchospasm [Unknown]
  - Urticaria [Recovered/Resolved]
  - Rash [Recovered/Resolved]
